FAERS Safety Report 25689458 (Version 1)
Quarter: 2025Q3

REPORT INFORMATION
  Report Type: Spontaneous
  Country: US (occurrence: US)
  Receive Date: 20250818
  Receipt Date: 20250818
  Transmission Date: 20251020
  Serious: No
  Sender: ROCHE
  Company Number: US-ROCHE-10000359170

PATIENT
  Age: 28 Year
  Sex: Female
  Weight: 99.79 kg

DRUGS (8)
  1. XOLAIR [Suspect]
     Active Substance: OMALIZUMAB
     Indication: Urticaria chronic
     Route: 058
     Dates: start: 20250523
  2. XOLAIR [Suspect]
     Active Substance: OMALIZUMAB
  3. ALTAVERA [Concomitant]
     Active Substance: ETHINYL ESTRADIOL\LEVONORGESTREL
     Indication: Contraception
     Dosage: TAKES NIGHTLY
     Route: 048
  4. BENADRYL [Concomitant]
     Active Substance: DIPHENHYDRAMINE HYDROCHLORIDE
     Dosage: TAKES AT NIGHT
     Route: 048
     Dates: start: 202507
  5. CLARITIN [Concomitant]
     Active Substance: LORATADINE
     Route: 048
  6. ZYRTEC [Concomitant]
     Active Substance: CETIRIZINE HYDROCHLORIDE
     Dosage: WAS TAKING 1 TABLET 5-6 TIMES A DAY
     Route: 048
     Dates: end: 20250703
  7. EPIPEN [Concomitant]
     Active Substance: EPINEPHRINE
     Indication: Seasonal allergy
  8. EPIPEN [Concomitant]
     Active Substance: EPINEPHRINE
     Indication: Allergy to arthropod sting

REACTIONS (7)
  - Product dose omission issue [Not Recovered/Not Resolved]
  - Therapeutic response shortened [Not Recovered/Not Resolved]
  - Memory impairment [Not Recovered/Not Resolved]
  - Needle issue [Unknown]
  - Seasonal allergy [Unknown]
  - Dyspnoea [Unknown]
  - Peripheral swelling [Unknown]

NARRATIVE: CASE EVENT DATE: 20250620
